FAERS Safety Report 9168812 (Version 1)
Quarter: 2013Q1

REPORT INFORMATION
  Report Type: Spontaneous
  Country: US (occurrence: None)
  Receive Date: 20130314
  Receipt Date: 20130314
  Transmission Date: 20140127
  Serious: Yes (Death)
  Sender: FDA-Public Use
  Company Number: None

PATIENT
  Age: 70 Year
  Sex: Male
  Weight: 116 kg

DRUGS (15)
  1. FENTANYL [Suspect]
     Indication: ANALGESIC THERAPY
     Route: 042
     Dates: start: 20130214, end: 20130217
  2. MIDAZOLAM [Suspect]
     Indication: SEDATION
     Route: 042
     Dates: start: 20130214, end: 20130217
  3. APAP [Concomitant]
  4. ASCORBIC ACID [Concomitant]
  5. CEFAZOLIN [Concomitant]
  6. CHLORHEXIDINE [Concomitant]
  7. CLONIDINE [Concomitant]
  8. FAMOTIDINE [Concomitant]
  9. FENTANYL [Concomitant]
  10. INSULIN ASPART SLIDING ACALA [Concomitant]
  11. METROPOLOL [Concomitant]
  12. MIDAZOLAM [Concomitant]
  13. MVI [Concomitant]
  14. NIFEDIPINE [Suspect]
  15. PHENYTOIN [Concomitant]

REACTIONS (5)
  - Hyperthermia [None]
  - Bradycardia [None]
  - General physical health deterioration [None]
  - Pulseless electrical activity [None]
  - Product contamination [None]
